FAERS Safety Report 5153638-0 (Version None)
Quarter: 2006Q4

REPORT INFORMATION
  Report Type: 
  Country: None (occurrence: None)
  Receive Date: 20061114
  Receipt Date: 20061031
  Transmission Date: 20070319
  Serious: Yes (Other)
  Sender: FDA-Public Use
  Company Number: 2006084703

PATIENT
  Age: 31 Year
  Sex: Male

DRUGS (3)
  1. AZITHROMYCIN [Suspect]
     Indication: PROSTATITIS
     Dosage: 500 MG (500 MG, 1 IN 1 D), ORAL
     Route: 048
     Dates: start: 20011116, end: 20011201
  2. DOXAZOSIN MESYLATE [Suspect]
     Indication: MUSCLE RELAXANT THERAPY
     Dosage: 4 MG (4 MG, 1 IN 1),  ORAL
     Route: 048
     Dates: start: 20011116, end: 20011201
  3. CIPROFLOXACIN [Suspect]
     Indication: PROSTATITIS
     Dosage: 1000 MG (500 MG, 2 IN 1 D), ORAL
     Route: 048
     Dates: start: 20011016, end: 20011101

REACTIONS (50)
  - ABDOMINAL DISCOMFORT [None]
  - ABDOMINAL PAIN [None]
  - ABNORMAL DREAMS [None]
  - ACTIVITIES OF DAILY LIVING IMPAIRED [None]
  - ALCOHOL INTOLERANCE [None]
  - ALOPECIA [None]
  - AMNESIA [None]
  - ANAL HAEMORRHAGE [None]
  - ARRHYTHMIA [None]
  - ASTHENIA [None]
  - AUTONOMIC NERVOUS SYSTEM IMBALANCE [None]
  - CHRONIC FATIGUE SYNDROME [None]
  - COGNITIVE DISORDER [None]
  - DECREASED ACTIVITY [None]
  - DEPRESSION [None]
  - DIARRHOEA [None]
  - DISEASE RECURRENCE [None]
  - DISTURBANCE IN ATTENTION [None]
  - DIZZINESS [None]
  - DRUG HYPERSENSITIVITY [None]
  - ELECTROENCEPHALOGRAM ABNORMAL [None]
  - ENDOCRINE DISORDER [None]
  - EPISTAXIS [None]
  - FAECAL INCONTINENCE [None]
  - FLATULENCE [None]
  - FOOD ALLERGY [None]
  - FOOD INTOLERANCE [None]
  - HEADACHE [None]
  - HYPERHIDROSIS [None]
  - IMMUNE SYSTEM DISORDER [None]
  - IRRITABLE BOWEL SYNDROME [None]
  - LIVER FUNCTION TEST ABNORMAL [None]
  - MUSCLE SPASMS [None]
  - MUSCLE TWITCHING [None]
  - MUSCULAR WEAKNESS [None]
  - NASOPHARYNGITIS [None]
  - NAUSEA [None]
  - NEUROLOGICAL SYMPTOM [None]
  - NIGHT SWEATS [None]
  - PAIN [None]
  - PALPITATIONS [None]
  - POLLAKIURIA [None]
  - PROSTATITIS [None]
  - SLEEP DISORDER [None]
  - STRESS [None]
  - TEMPERATURE REGULATION DISORDER [None]
  - TINNITUS [None]
  - TREMOR [None]
  - VISION BLURRED [None]
  - WEIGHT INCREASED [None]
